FAERS Safety Report 7600294-5 (Version None)
Quarter: 2011Q3

REPORT INFORMATION
  Report Type: 
  Country: None (occurrence: None)
  Receive Date: 20110711
  Receipt Date: 20110711
  Transmission Date: 20111222
  Serious: Yes (Disabling)
  Sender: FDA-Public Use
  Company Number: GB-ABBOTT-11P-167-0836998-00

PATIENT
  Sex: Male
  Weight: 63.5 kg

DRUGS (5)
  1. E45 [Concomitant]
     Indication: PRODUCT USED FOR UNKNOWN INDICATION
     Route: 061
     Dates: start: 20081126
  2. DOVOBET [Concomitant]
     Indication: PRODUCT USED FOR UNKNOWN INDICATION
     Route: 061
     Dates: start: 20081126
  3. SIMVASTATIN [Concomitant]
     Indication: PRODUCT USED FOR UNKNOWN INDICATION
     Route: 050
     Dates: start: 20081126
  4. HUMIRA [Suspect]
     Indication: PSORIASIS
     Route: 058
     Dates: start: 20100624, end: 20100814
  5. LACIDIPINE [Concomitant]
     Indication: PRODUCT USED FOR UNKNOWN INDICATION
     Route: 050
     Dates: start: 20081126

REACTIONS (1)
  - GUILLAIN-BARRE SYNDROME [None]
